FAERS Safety Report 11109460 (Version 1)
Quarter: 2015Q2

REPORT INFORMATION
  Report Type: Spontaneous
  Country: US (occurrence: None)
  Receive Date: 20150511
  Receipt Date: 20150511
  Transmission Date: 20150821
  Serious: Yes (Other)
  Sender: FDA-Public Use
  Company Number: 2015AKN00255

PATIENT
  Age: 18 Year
  Sex: Female

DRUGS (3)
  1. UNSPECIFIED ORAL CONTRACEPTIVES [Concomitant]
     Active Substance: UNSPECIFIED INGREDIENT
  2. BRINTELLEX (VORTIOXETINE) [Concomitant]
  3. MYORISAN [Suspect]
     Active Substance: ISOTRETINOIN
     Indication: ACNE
     Dosage: 40 MG, 1X/DAY, ORAL
     Route: 048
     Dates: start: 20141210

REACTIONS (1)
  - Psychotic disorder [None]
